FAERS Safety Report 8904324 (Version 2)
Quarter: 2012Q4

REPORT INFORMATION
  Report Type: Report from Study
  Country: US (occurrence: US)
  Receive Date: 20121112
  Receipt Date: 20121221
  Transmission Date: 20130627
  Serious: Yes (Death)
  Sender: FDA-Public Use
  Company Number: US-ELI_LILLY_AND_COMPANY-US201211002395

PATIENT
  Age: 78 Year
  Sex: Male
  Weight: 89.4 kg

DRUGS (7)
  1. PEMETREXED [Suspect]
     Indication: NON-SMALL CELL LUNG CANCER
     Dosage: 500 mg/m2, over 10 min on day 1 of 3 wks
     Route: 042
     Dates: start: 20090915, end: 20091117
  2. PEMETREXED [Suspect]
     Dosage: 780 mg, 10 min over day 1 every 3 wks
     Route: 042
     Dates: start: 20091117
  3. CISPLATIN [Suspect]
     Indication: NON-SMALL CELL LUNG CANCER
     Dosage: 75 mg/m2, over 1 hr on day 1 every 3 wks
     Route: 042
     Dates: start: 20090915, end: 20091117
  4. CISPLATIN [Suspect]
     Dosage: 117 mg, over 1 hr day 1 every 3 wks
     Route: 042
     Dates: start: 20091117
  5. FOLIC ACID [Concomitant]
     Dosage: 1 mg, qd
  6. VITAMIN B12 [Concomitant]
     Dosage: UNK
     Route: 030
     Dates: start: 20090908
  7. DEXAMETHASONE [Concomitant]
     Dosage: 10 mg, UNK
     Route: 042
     Dates: start: 20091117

REACTIONS (1)
  - Pulmonary embolism [Fatal]
